FAERS Safety Report 9144423 (Version 1)
Quarter: 2013Q1

REPORT INFORMATION
  Report Type: Spontaneous
  Country: DE (occurrence: DE)
  Receive Date: 20130306
  Receipt Date: 20130306
  Transmission Date: 20140127
  Serious: Yes (Other)
  Sender: FDA-Public Use
  Company Number: DE-ROCHE-1194783

PATIENT
  Sex: Female
  Weight: 3.8 kg

DRUGS (2)
  1. DIAZEPAM [Suspect]
     Indication: BORDERLINE PERSONALITY DISORDER
     Route: 064
  2. DOXEPIN [Suspect]
     Indication: BORDERLINE PERSONALITY DISORDER
     Route: 064

REACTIONS (3)
  - Bradycardia neonatal [Recovered/Resolved]
  - Apnoea neonatal [Recovered/Resolved]
  - Hypotonia neonatal [Recovered/Resolved]
